FAERS Safety Report 4323434-2 (Version None)
Quarter: 2004Q1

REPORT INFORMATION
  Report Type: 
  Country: None (occurrence: None)
  Receive Date: 20040325
  Receipt Date: 20030130
  Transmission Date: 20041129
  Serious: Yes (Hospitalization, Disabling, Other)
  Sender: FDA-Public Use
  Company Number: WAES 0302USA00108

PATIENT
  Sex: Male
  Weight: 98 kg

DRUGS (3)
  1. IBUPROFEN [Concomitant]
     Indication: ARTHRALGIA
     Dates: start: 19970101, end: 19980101
  2. INSULIN [Concomitant]
  3. VIOXX [Suspect]
     Indication: ARTHRALGIA
     Route: 048

REACTIONS (63)
  - ACUTE MYOCARDIAL INFARCTION [None]
  - ANGINA UNSTABLE [None]
  - ARTERIAL THROMBOSIS [None]
  - ARTHRALGIA [None]
  - ATHEROSCLEROSIS [None]
  - BURSITIS [None]
  - CARDIAC FAILURE CONGESTIVE [None]
  - CARDIAC VALVE DISEASE [None]
  - CELLULITIS [None]
  - CHEST PAIN [None]
  - CHRONIC OBSTRUCTIVE AIRWAYS DISEASE [None]
  - CHRONIC OBSTRUCTIVE AIRWAYS DISEASE EXACERBATED [None]
  - CONFUSIONAL STATE [None]
  - CONGESTIVE CARDIOMYOPATHY [None]
  - DEPRESSION [None]
  - DIZZINESS [None]
  - DRUG LEVEL ABOVE THERAPEUTIC [None]
  - EMOTIONAL DISTRESS [None]
  - FALL [None]
  - FEELING ABNORMAL [None]
  - GASTROINTESTINAL HAEMORRHAGE [None]
  - GLAUCOMA [None]
  - GOUT [None]
  - HEADACHE [None]
  - HYPOACUSIS [None]
  - INJURY [None]
  - INTERVERTEBRAL DISC PROTRUSION [None]
  - INTERVERTEBRAL DISC SPACE NARROWING [None]
  - ISCHAEMIC CARDIOMYOPATHY [None]
  - KIDNEY INFECTION [None]
  - LACUNAR INFARCTION [None]
  - LEG AMPUTATION [None]
  - MAJOR DEPRESSION [None]
  - MEDICATION ERROR [None]
  - MYALGIA [None]
  - MYOCARDIAL INFARCTION [None]
  - NAUSEA [None]
  - NECK PAIN [None]
  - OEDEMA PERIPHERAL [None]
  - PAIN [None]
  - PERSONALITY DISORDER [None]
  - PNEUMONIA [None]
  - POST-TRAUMATIC STRESS DISORDER [None]
  - PROTEIN URINE [None]
  - PROTEINURIA [None]
  - PULMONARY HYPERTENSION [None]
  - PULSE ABNORMAL [None]
  - RENAL FAILURE CHRONIC [None]
  - ROTATOR CUFF SYNDROME [None]
  - SCIATICA [None]
  - SLEEP APNOEA SYNDROME [None]
  - SPONDYLITIS [None]
  - THROMBOSIS [None]
  - TRANSIENT ISCHAEMIC ATTACK [None]
  - TREATMENT NONCOMPLIANCE [None]
  - URINE FLOW DECREASED [None]
  - VENTRICULAR HYPOKINESIA [None]
  - VERTIGO [None]
  - VIRAL INFECTION [None]
  - VISUAL DISTURBANCE [None]
  - VISUAL FIELD DEFECT [None]
  - WEIGHT DECREASED [None]
  - WEIGHT INCREASED [None]
